FAERS Safety Report 19183065 (Version 1)
Quarter: 2021Q2

REPORT INFORMATION
  Report Type: Spontaneous
  Country: FR (occurrence: FR)
  Receive Date: 20210426
  Receipt Date: 20210426
  Transmission Date: 20210717
  Serious: Yes (Other)
  Sender: FDA-Public Use
  Company Number: FR-BAXTER-2021BAX008577

PATIENT
  Age: 41 Year
  Sex: Female

DRUGS (2)
  1. FLOSEAL HEMOSTATIC MATRIX (FLOSEAL VH S/D), 10ML [Suspect]
     Active Substance: THROMBIN
     Indication: TISSUE SEALING
     Route: 065
  2. TISSEEL (FACTOR XIII CONCENTRATE (HUMAN)\FIBRINOGEN HUMAN\THROMBIN HUMAN) [Suspect]
     Active Substance: APROTININ\CALCIUM CHLORIDE\FIBRINOGEN HUMAN\FACTOR XIII CONCENTRATE (HUMAN)\THROMBIN
     Indication: PRODUCT USED FOR UNKNOWN INDICATION
     Route: 065

REACTIONS (1)
  - Intracranial pressure increased [Unknown]
